FAERS Safety Report 24386697 (Version 2)
Quarter: 2024Q4

REPORT INFORMATION
  Report Type: Spontaneous
  Country: FR (occurrence: FR)
  Receive Date: 20241002
  Receipt Date: 20241008
  Transmission Date: 20250115
  Serious: Yes (Hospitalization)
  Sender: ROCHE
  Company Number: None

PATIENT
  Age: 79 Year
  Sex: Female

DRUGS (2)
  1. MABTHERA [Suspect]
     Active Substance: RITUXIMAB
     Indication: Rheumatoid arthritis
     Dosage: C6: 1 G TO 6 MONTHS
     Route: 042
     Dates: start: 20240604, end: 20240604
  2. MABTHERA [Suspect]
     Active Substance: RITUXIMAB
     Dosage: C5 (1 G TOUS LES 6 MOIS)
     Route: 042
     Dates: start: 20230810, end: 20230810

REACTIONS (3)
  - Coronary artery stenosis [Recovered/Resolved with Sequelae]
  - Tachycardia [Recovered/Resolved]
  - Chest pain [Recovered/Resolved]

NARRATIVE: CASE EVENT DATE: 20240621
